FAERS Safety Report 15854295 (Version 1)
Quarter: 2019Q1

REPORT INFORMATION
  Report Type: Spontaneous
  Country: US (occurrence: US)
  Receive Date: 20190121
  Receipt Date: 20190121
  Transmission Date: 20190417
  Serious: Yes (Life-Threatening, Disabling)
  Sender: FDA-Public Use
  Company Number: None

PATIENT
  Age: 47 Year
  Sex: Female

DRUGS (1)
  1. LAMICTAL [Suspect]
     Active Substance: LAMOTRIGINE
     Indication: EPILEPSY

REACTIONS (6)
  - Vertigo [None]
  - Tardive dyskinesia [None]
  - Muscle spasms [None]
  - Hot flush [None]
  - Paraesthesia [None]
  - Movement disorder [None]

NARRATIVE: CASE EVENT DATE: 20070427
